FAERS Safety Report 14552567 (Version 1)
Quarter: 2018Q1

REPORT INFORMATION
  Report Type: Spontaneous
  Country: CN (occurrence: CN)
  Receive Date: 20180220
  Receipt Date: 20180220
  Transmission Date: 20180509
  Serious: Yes (Hospitalization)
  Sender: FDA-Public Use
  Company Number: CN-NOVAST LABORATORIES, LTD-CN-2018NOV000092

PATIENT
  Age: 43 Year
  Sex: Female

DRUGS (1)
  1. JULEBER [Suspect]
     Active Substance: DESOGESTREL\ETHINYL ESTRADIOL
     Indication: PRODUCT USED FOR UNKNOWN INDICATION
     Dosage: UNK

REACTIONS (4)
  - Intracranial pressure increased [Recovering/Resolving]
  - Epilepsy [Recovered/Resolved]
  - Cerebral infarction [Recovering/Resolving]
  - Intracranial venous sinus thrombosis [Recovering/Resolving]
